FAERS Safety Report 20254418 (Version 1)
Quarter: 2021Q4

REPORT INFORMATION
  Report Type: Report from Study
  Country: CA (occurrence: CA)
  Receive Date: 20211230
  Receipt Date: 20211230
  Transmission Date: 20220303
  Serious: Yes (Other)
  Sender: FDA-Public Use
  Company Number: CA-JNJFOC-20210912128

PATIENT
  Age: 46 Year
  Sex: Male
  Weight: 122.7 kg

DRUGS (1)
  1. REMICADE [Suspect]
     Active Substance: INFLIXIMAB
     Indication: Hidradenitis
     Dosage: INFUSED ON 03-AUG-2021. PATIENT RECEIVED HIS REMICADE INFUSION ON 11-NOV-2021, EXPIRY DATE: 30-SEP-2
     Route: 042
     Dates: start: 20190517

REACTIONS (8)
  - Malaise [Not Recovered/Not Resolved]
  - Dry skin [Unknown]
  - Hidradenitis [Recovered/Resolved]
  - Hypoaesthesia [Recovered/Resolved]
  - Fatigue [Unknown]
  - Myalgia [Unknown]
  - Drug ineffective [Unknown]
  - Muscle spasms [Not Recovered/Not Resolved]

NARRATIVE: CASE EVENT DATE: 20211018
